FAERS Safety Report 10541918 (Version 2)
Quarter: 2014Q4

REPORT INFORMATION
  Report Type: Report from Study
  Country: GB (occurrence: GB)
  Receive Date: 20141024
  Receipt Date: 20141024
  Transmission Date: 20150529
  Serious: Yes (Other)
  Sender: FDA-Public Use
  Company Number: GB-GLAXOSMITHKLINE-GB2014003668

PATIENT

DRUGS (3)
  1. FF/VI (FLUTICASONE FUROATE/VILANTEROL) [Concomitant]
     Indication: ASTHMA
     Dosage: 100/25 004 OD
     Route: 055
     Dates: start: 20140423, end: 20140630
  2. FLUTICASONE FUROATE + VILANTEROL TRIFENATATE [Suspect]
     Active Substance: FLUTICASONE FUROATE\VILANTEROL TRIFENATATE
     Indication: ASTHMA
     Dosage: 100/25 UG, QD
     Route: 055
     Dates: start: 20140630
  3. SERETIDE [Concomitant]
     Active Substance: FLUTICASONE FUROATE\SALMETEROL XINAFOATE
     Indication: ASTHMA
     Dosage: 125/25 004 BID
     Route: 055
     Dates: end: 20140422

REACTIONS (1)
  - Chest pain [Not Recovered/Not Resolved]

NARRATIVE: CASE EVENT DATE: 20140924
